FAERS Safety Report 9971333 (Version 1)
Quarter: 2014Q1

REPORT INFORMATION
  Report Type: Spontaneous
  Country: US (occurrence: None)
  Receive Date: 20140304
  Receipt Date: 20140304
  Transmission Date: 20141002
  Serious: Yes (Other)
  Sender: FDA-Public Use
  Company Number: QSC-2014-0112

PATIENT
  Age: 49 Year
  Sex: Female

DRUGS (5)
  1. H.P ACTHAR GEL (ADRENOCORTICOTROPIC HORMONE), GEL FOR INJECTION, 80U/ML [Suspect]
     Indication: PULMONARY SARCOIDOSIS
     Route: 058
     Dates: start: 20140115, end: 201401
  2. CANDESARTAN (CANDESARTAN) [Concomitant]
  3. FISH OIL (FISH OIL) [Concomitant]
  4. NIACIN (NICOTINIC ACID) [Concomitant]
  5. ALLEGRA [Concomitant]

REACTIONS (2)
  - Atrial fibrillation [None]
  - Oedema [None]
